FAERS Safety Report 4494283-X (Version None)
Quarter: 2004Q4

REPORT INFORMATION
  Report Type: 
  Country: None (occurrence: None)
  Receive Date: 20041102
  Receipt Date: 20041018
  Transmission Date: 20050328
  Serious: Yes (Other)
  Sender: FDA-Public Use
  Company Number: USA041081434

PATIENT
  Sex: Female
  Weight: 73 kg

DRUGS (1)
  1. PROZAC [Suspect]
     Indication: DEPRESSION

REACTIONS (5)
  - CARDIAC DISORDER [None]
  - FATIGUE [None]
  - INCREASED APPETITE [None]
  - PALPITATIONS [None]
  - WEIGHT INCREASED [None]
